FAERS Safety Report 19299429 (Version 1)
Quarter: 2021Q2

REPORT INFORMATION
  Report Type: Spontaneous
  Country: US (occurrence: US)
  Receive Date: 20210524
  Receipt Date: 20210524
  Transmission Date: 20210717
  Serious: No
  Sender: FDA-Public Use
  Company Number: None

PATIENT
  Age: 33 Year
  Sex: Female
  Weight: 54.43 kg

DRUGS (1)
  1. SUBOXONE [Suspect]
     Active Substance: BUPRENORPHINE HYDROCHLORIDE\NALOXONE HYDROCHLORIDE
     Indication: DRUG DEPENDENCE
     Dosage: :ONE 8MG?2MG FILM DAILY SUBLINGUAL?
     Route: 060
     Dates: start: 20210408, end: 20210521

REACTIONS (2)
  - Oedema mouth [None]
  - Erythema [None]

NARRATIVE: CASE EVENT DATE: 20210521
